FAERS Safety Report 10203448 (Version 1)
Quarter: 2014Q2

REPORT INFORMATION
  Report Type: Spontaneous
  Country: NL (occurrence: NL)
  Receive Date: 20140529
  Receipt Date: 20140529
  Transmission Date: 20141212
  Serious: Yes (Hospitalization)
  Sender: FDA-Public Use
  Company Number: NL-AMGEN INC.-NLDSP2014038545

PATIENT
  Age: 66 Year
  Sex: Male

DRUGS (1)
  1. NPLATE [Suspect]
     Indication: PRODUCT USED FOR UNKNOWN INDICATION
     Dosage: 0.70 ML, QWK
     Route: 058
     Dates: start: 20120417

REACTIONS (1)
  - Cardiac disorder [Unknown]
